FAERS Safety Report 24705175 (Version 2)
Quarter: 2025Q1

REPORT INFORMATION
  Report Type: Spontaneous
  Country: US (occurrence: US)
  Receive Date: 20241206
  Receipt Date: 20250327
  Transmission Date: 20250408
  Serious: No
  Sender: ALEXION PHARMACEUTICALS
  Company Number: US-AstraZeneca-CH-00761498A

PATIENT

DRUGS (2)
  1. CRESTOR [Suspect]
     Active Substance: ROSUVASTATIN CALCIUM
     Indication: Blood cholesterol increased
     Route: 065
  2. Ezetimibe AbZ [Concomitant]
     Indication: Blood cholesterol increased
     Route: 065

REACTIONS (2)
  - Trigger finger [Recovered/Resolved]
  - Tendon disorder [Recovering/Resolving]
